FAERS Safety Report 9594569 (Version 1)
Quarter: 2013Q3

REPORT INFORMATION
  Report Type: Spontaneous
  Country: US (occurrence: None)
  Receive Date: 20130923
  Receipt Date: 20130923
  Transmission Date: 20140515
  Serious: Yes (Hospitalization)
  Sender: FDA-Public Use
  Company Number: 2012ST000637

PATIENT
  Age: 18 Year
  Sex: Female
  Weight: 55.2 kg

DRUGS (7)
  1. MATULANE [Suspect]
     Indication: HODGKIN^S DISEASE
     Route: 048
     Dates: start: 2012, end: 2012
  2. PRENDISONE [Concomitant]
  3. ETOPOSIDE [Concomitant]
  4. DOXORUBICIN [Concomitant]
  5. CYCLOPHOSPHAMIDE [Concomitant]
  6. BLEOMYCIN [Concomitant]
  7. VINCRISTINE [Concomitant]

REACTIONS (2)
  - Pyrexia [None]
  - Asthenia [None]
